FAERS Safety Report 8054133-1 (Version None)
Quarter: 2012Q1

REPORT INFORMATION
  Report Type: 
  Country: None (occurrence: None)
  Receive Date: 20120118
  Receipt Date: 20120110
  Transmission Date: 20120608
  Serious: Yes (Death, Other)
  Sender: FDA-Public Use
  Company Number: DK-JNJFOC-20110904021

PATIENT
  Sex: Female
  Weight: 59 kg

DRUGS (11)
  1. ACTEMRA [Suspect]
     Route: 065
     Dates: start: 20101130
  2. REMICADE [Suspect]
     Indication: RHEUMATOID ARTHRITIS
     Dosage: 0,2,6 +8/
     Route: 042
     Dates: start: 20081014, end: 20081127
  3. ACTEMRA [Suspect]
     Route: 065
     Dates: start: 20101102
  4. ACTEMRA [Suspect]
     Indication: RHEUMATOID ARTHRITIS
     Route: 065
     Dates: start: 20101007
  5. ACTEMRA [Suspect]
     Route: 065
     Dates: start: 20090128
  6. ACTEMRA [Suspect]
     Route: 065
     Dates: start: 20090910
  7. ENBREL [Suspect]
     Indication: RHEUMATOID ARTHRITIS
     Route: 058
     Dates: start: 20080709, end: 20081013
  8. ACTEMRA [Suspect]
     Route: 065
     Dates: start: 20100422
  9. ACTEMRA [Suspect]
     Route: 065
  10. ACTEMRA [Suspect]
     Route: 065
     Dates: start: 20101221, end: 20101221
  11. ACTEMRA [Suspect]
     Route: 065
     Dates: start: 20100225

REACTIONS (1)
  - LUNG NEOPLASM MALIGNANT [None]
